FAERS Safety Report 13518532 (Version 1)
Quarter: 2017Q2

REPORT INFORMATION
  Report Type: Spontaneous
  Country: FR (occurrence: FR)
  Receive Date: 20170505
  Receipt Date: 20170505
  Transmission Date: 20170830
  Serious: Yes (Life-Threatening, Hospitalization)
  Sender: FDA-Public Use
  Company Number: PHHY2017FR065584

PATIENT
  Age: 12 Year
  Sex: Male

DRUGS (4)
  1. EXJADE [Suspect]
     Active Substance: DEFERASIROX
     Dosage: 625 MBQ, QD
     Route: 048
     Dates: start: 201510, end: 20170215
  2. ORACILLINE [Concomitant]
     Active Substance: PENICILLIN V
     Indication: PRODUCT USED FOR UNKNOWN INDICATION
     Dosage: 1 UNK, QD (UNIT: MUI)
     Route: 065
  3. SIKLOS [Concomitant]
     Active Substance: HYDROXYUREA
     Indication: PRODUCT USED FOR UNKNOWN INDICATION
     Dosage: 700 MG, QD
     Route: 065
     Dates: start: 201602, end: 20170207
  4. EXJADE [Suspect]
     Active Substance: DEFERASIROX
     Indication: SICKLE CELL ANAEMIA
     Dosage: 625 MBQ, QD
     Route: 048
     Dates: start: 2012

REACTIONS (5)
  - Vomiting [Recovered/Resolved]
  - Hepatic failure [Recovered/Resolved]
  - Hyperammonaemia [Recovered/Resolved]
  - Asthenia [Recovered/Resolved]
  - Hepatic encephalopathy [Recovered/Resolved]

NARRATIVE: CASE EVENT DATE: 20170215
